FAERS Safety Report 16014486 (Version 1)
Quarter: 2019Q1

REPORT INFORMATION
  Report Type: Spontaneous
  Country: JP (occurrence: JP)
  Receive Date: 20190227
  Receipt Date: 20190227
  Transmission Date: 20190418
  Serious: Yes (Death, Hospitalization)
  Sender: FDA-Public Use
  Company Number: JP-ANIPHARMA-2019-JP-000042

PATIENT
  Age: 79 Year
  Sex: Male

DRUGS (1)
  1. CASODEX [Suspect]
     Active Substance: BICALUTAMIDE
     Indication: PROSTATE CANCER
     Dosage: 80 MG QD
     Route: 048
     Dates: start: 20150605, end: 20190103

REACTIONS (2)
  - Interstitial lung disease [Fatal]
  - Death [Fatal]

NARRATIVE: CASE EVENT DATE: 20190104
